FAERS Safety Report 9140984 (Version 1)
Quarter: 2013Q1

REPORT INFORMATION
  Report Type: Report from Study
  Country: US (occurrence: US)
  Receive Date: 20130305
  Receipt Date: 20130305
  Transmission Date: 20140127
  Serious: Yes (Other)
  Sender: FDA-Public Use
  Company Number: US-ABBOTT-13P-163-1055766-00

PATIENT
  Age: 82 Year
  Sex: Female
  Weight: 84.9 kg

DRUGS (3)
  1. HUMIRA [Suspect]
     Indication: RHEUMATOID ARTHRITIS
     Route: 058
     Dates: start: 2005
  2. METHOTREXATE [Concomitant]
     Indication: PRODUCT USED FOR UNKNOWN INDICATION
  3. IRON [Concomitant]
     Indication: PRODUCT USED FOR UNKNOWN INDICATION

REACTIONS (6)
  - Loss of consciousness [Recovered/Resolved]
  - Fall [Recovered/Resolved]
  - Abasia [Recovered/Resolved]
  - Periorbital contusion [Recovered/Resolved]
  - Facial bones fracture [Recovered/Resolved]
  - Tremor [Not Recovered/Not Resolved]
